FAERS Safety Report 17568612 (Version 2)
Quarter: 2020Q2

REPORT INFORMATION
  Report Type: Other
  Country: IT (occurrence: IT)
  Receive Date: 20200320
  Receipt Date: 20200420
  Transmission Date: 20200713
  Serious: Yes (Hospitalization)
  Sender: FDA-Public Use
  Company Number: IT-CELLTRION INC.-2020IT020651

PATIENT

DRUGS (1)
  1. RITUXIMAB (UNKNOWN) [Suspect]
     Active Substance: RITUXIMAB
     Indication: LUPUS NEPHRITIS
     Dosage: 10 MG, 1 CYCLE
     Route: 042
     Dates: start: 20200206, end: 20200206

REACTIONS (7)
  - Rhinitis [Recovered/Resolved]
  - Off label use [Recovered/Resolved]
  - Hypoxia [Recovered/Resolved]
  - Product use in unapproved indication [Unknown]
  - Respiratory disorder [Recovered/Resolved]
  - Tongue pruritus [Recovered/Resolved]
  - Headache [Recovered/Resolved]

NARRATIVE: CASE EVENT DATE: 20200206
